FAERS Safety Report 10946781 (Version 2)
Quarter: 2015Q2

REPORT INFORMATION
  Report Type: Spontaneous
  Country: US (occurrence: US)
  Receive Date: 20150323
  Receipt Date: 20150615
  Transmission Date: 20150821
  Serious: No
  Sender: FDA-Public Use
  Company Number: US-PFIZER INC-2015097032

PATIENT
  Age: 59 Year
  Sex: Female

DRUGS (15)
  1. LYRICA [Suspect]
     Active Substance: PREGABALIN
     Indication: RADICULOPATHY
     Dosage: 150 MG, 2X/DAY
     Route: 048
  2. LITHIUM. [Concomitant]
     Active Substance: LITHIUM
     Indication: ANXIETY
  3. TRAZODONE [Concomitant]
     Active Substance: TRAZODONE HYDROCHLORIDE
     Indication: DEPRESSION
  4. TRAZODONE [Concomitant]
     Active Substance: TRAZODONE HYDROCHLORIDE
     Indication: ANXIETY
  5. HYDROCODONE [Concomitant]
     Active Substance: HYDROCODONE
     Dosage: UNK
  6. RISPERIDONE. [Concomitant]
     Active Substance: RISPERIDONE
     Indication: DEPRESSION
  7. LITHIUM. [Concomitant]
     Active Substance: LITHIUM
     Indication: BIPOLAR DISORDER
     Dosage: 300 MG, 3X/DAY
     Route: 048
     Dates: start: 201404
  8. TRAZODONE [Concomitant]
     Active Substance: TRAZODONE HYDROCHLORIDE
     Indication: BIPOLAR DISORDER
     Dosage: 50 MG, 2X/DAY
     Route: 048
     Dates: start: 200904
  9. LYRICA [Suspect]
     Active Substance: PREGABALIN
     Dosage: 150 (UNITS UNSPECIFIED) ; 2X/DAY
     Dates: start: 201310
  10. RISPERIDONE. [Concomitant]
     Active Substance: RISPERIDONE
     Indication: ANXIETY
     Dosage: 0.5 MG, 2X/DAY
  11. RISPERIDONE. [Concomitant]
     Active Substance: RISPERIDONE
     Indication: BIPOLAR DISORDER
     Dosage: 3 MG, AT NIGHT
     Route: 048
     Dates: start: 201401
  12. HYDROXYZINE [Concomitant]
     Active Substance: HYDROXYZINE\HYDROXYZINE HYDROCHLORIDE
     Indication: ANXIETY
     Dosage: 25 MG, 2X/DAY
     Dates: start: 201410
  13. LITHIUM. [Concomitant]
     Active Substance: LITHIUM
     Indication: DEPRESSION
  14. RISPERIDONE. [Concomitant]
     Active Substance: RISPERIDONE
     Indication: PARANOIA
  15. RISPERIDONE. [Concomitant]
     Active Substance: RISPERIDONE
     Indication: POST-TRAUMATIC STRESS DISORDER

REACTIONS (7)
  - Tremor [Recovered/Resolved]
  - Vomiting [Unknown]
  - Drug withdrawal syndrome [Recovered/Resolved]
  - Paranoia [Recovered/Resolved]
  - Insomnia [Recovered/Resolved]
  - Activities of daily living impaired [Recovered/Resolved]
  - Hyperhidrosis [Recovered/Resolved]

NARRATIVE: CASE EVENT DATE: 2014
